FAERS Safety Report 24582282 (Version 2)
Quarter: 2024Q4

REPORT INFORMATION
  Report Type: Spontaneous
  Country: US (occurrence: US)
  Receive Date: 20241105
  Receipt Date: 20241108
  Transmission Date: 20250114
  Serious: Yes (Hospitalization)
  Sender: AMGEN
  Company Number: US-AMGEN-USASP2024217664

PATIENT
  Sex: Male

DRUGS (1)
  1. PROCYSBI [Suspect]
     Active Substance: CYSTEAMINE BITARTRATE
     Indication: Cystinosis
     Dosage: 975 MILLIGRAM, BID (PROCYSBI 75 MG CAP TAKE 975 MG (13 CAPSULES))
     Route: 048

REACTIONS (1)
  - Kidney transplant rejection [Unknown]
